FAERS Safety Report 6852919-X (Version None)
Quarter: 2010Q3

REPORT INFORMATION
  Report Type: 
  Country: None (occurrence: None)
  Receive Date: 20100717
  Receipt Date: 20071126
  Transmission Date: 20110219
  Serious: No
  Sender: FDA-Public Use
  Company Number: US-PFIZER INC-2007101370

PATIENT
  Sex: Female

DRUGS (7)
  1. CHANTIX [Suspect]
     Indication: SMOKING CESSATION THERAPY
     Dates: start: 20071101
  2. ZYRTEC [Concomitant]
     Dates: start: 20071101
  3. ALL OTHER THERAPEUTIC PRODUCTS [Concomitant]
     Indication: COUGH
     Dates: start: 20071101
  4. AVELOX [Concomitant]
     Dates: start: 20071101
  5. LEXAPRO [Concomitant]
  6. XANAX [Concomitant]
     Indication: SLEEP DISORDER
  7. REQUIP [Concomitant]
     Indication: LIMB DISCOMFORT

REACTIONS (5)
  - ABNORMAL DREAMS [None]
  - APHONIA [None]
  - COUGH [None]
  - INCREASED UPPER AIRWAY SECRETION [None]
  - RHINORRHOEA [None]
